FAERS Safety Report 5856970-8 (Version None)
Quarter: 2008Q3

REPORT INFORMATION
  Report Type: 
  Country: None (occurrence: None)
  Receive Date: 20080818
  Receipt Date: 20080520
  Transmission Date: 20090109
  Serious: No
  Sender: FDA-Public Use
  Company Number: WAES 0805USA04358

PATIENT
  Sex: Male

DRUGS (2)
  1. JANUVIA [Suspect]
     Dosage: PO
     Route: 048
     Dates: start: 20061001
  2. LEVEMIR [Concomitant]

REACTIONS (2)
  - THERAPEUTIC RESPONSE UNEXPECTED [None]
  - WEIGHT DECREASED [None]
